FAERS Safety Report 24025075 (Version 1)
Quarter: 2024Q2

REPORT INFORMATION
  Report Type: Report from Study
  Country: AT (occurrence: AT)
  Receive Date: 20240628
  Receipt Date: 20240628
  Transmission Date: 20240716
  Serious: No
  Sender: FDA-Public Use
  Company Number: AT-ROCHE-3351520

PATIENT
  Age: 70 Year
  Sex: Male
  Weight: 54.0 kg

DRUGS (11)
  1. ALECTINIB [Suspect]
     Active Substance: ALECTINIB
     Indication: Non-small cell lung cancer metastatic
     Route: 048
     Dates: start: 20210930
  2. ASPIRIN [Concomitant]
     Active Substance: ASPIRIN
     Route: 048
     Dates: start: 20210908
  3. AMLODIPINE BESYLATE [Concomitant]
     Active Substance: AMLODIPINE BESYLATE
     Indication: Hypertension
     Route: 048
  4. SALMECOMP [Concomitant]
     Dosage: 2 OTHER
     Route: 055
  5. FENOTEROL HYDROBROMIDE\IPRATROPIUM BROMIDE [Concomitant]
     Active Substance: FENOTEROL HYDROBROMIDE\IPRATROPIUM BROMIDE
     Dosage: 2 PUFF
     Route: 055
  6. HALCION [Concomitant]
     Active Substance: TRIAZOLAM
     Dosage: FREQUENCY TEXT:PRN
     Route: 048
     Dates: start: 20210923
  7. ACETAMINOPHEN [Concomitant]
     Active Substance: ACETAMINOPHEN
     Route: 048
     Dates: start: 20211005
  8. NOVALGIN (AUSTRIA) [Concomitant]
     Dosage: 30 GTT
     Route: 048
     Dates: start: 20211005
  9. HYDROXYUREA [Concomitant]
     Active Substance: HYDROXYUREA
     Route: 048
     Dates: start: 20220207
  10. DOXYCYCLINE [Concomitant]
     Active Substance: DOXYCYCLINE\DOXYCYCLINE HYCLATE
     Route: 048
     Dates: start: 20221216, end: 20221220
  11. LORLATINIB [Concomitant]
     Active Substance: LORLATINIB
     Dates: start: 20221222

REACTIONS (1)
  - Transferrin decreased [Unknown]

NARRATIVE: CASE EVENT DATE: 20221209
